FAERS Safety Report 9453035 (Version 1)
Quarter: 2013Q3

REPORT INFORMATION
  Report Type: Spontaneous
  Country: US (occurrence: US)
  Receive Date: 20130812
  Receipt Date: 20130812
  Transmission Date: 20140515
  Serious: Yes (Other)
  Sender: FDA-Public Use
  Company Number: US-ELI_LILLY_AND_COMPANY-US201308000395

PATIENT
  Sex: Female

DRUGS (1)
  1. EVISTA [Suspect]
     Indication: BREAST CANCER
     Dosage: 60 MG, QD
     Route: 065
     Dates: start: 200808

REACTIONS (3)
  - Skin cancer [Not Recovered/Not Resolved]
  - Ankle fracture [Unknown]
  - Hirsutism [Unknown]
